FAERS Safety Report 8991143 (Version 3)
Quarter: 2013Q1

REPORT INFORMATION
  Report Type: Spontaneous
  Country: US (occurrence: None)
  Receive Date: 20121219
  Receipt Date: 20130122
  Transmission Date: 20140127
  Serious: Yes (Death, Hospitalization, Other)
  Sender: FDA-Public Use
  Company Number: 2012-1522

PATIENT
  Age: 47 Year
  Sex: Female

DRUGS (2)
  1. KYPROLIS [Suspect]
     Indication: PLASMA CELL MYELOMA
     Dosage: (38 MG,2 IN 1 WK)
     Route: 042
     Dates: start: 20121112, end: 20121127
  2. LASIX (FUROSEMIDE) (FUROSEMIDE) [Concomitant]

REACTIONS (20)
  - Pyrexia [None]
  - Abasia [None]
  - Blood urine present [None]
  - Renal failure acute [None]
  - Asthenia [None]
  - Tremor [None]
  - Epistaxis [None]
  - Gingival bleeding [None]
  - Chills [None]
  - Pancytopenia [None]
  - Dyspnoea [None]
  - Plasma cell myeloma [None]
  - Blood sodium decreased [None]
  - Myoclonus [None]
  - Fatigue [None]
  - Transfusion reaction [None]
  - Hypomagnesaemia [None]
  - Encephalopathy [None]
  - Blood viscosity increased [None]
  - Hypercalcaemia of malignancy [None]
